FAERS Safety Report 6939491-0 (Version None)
Quarter: 2010Q3

REPORT INFORMATION
  Report Type: 
  Country: None (occurrence: None)
  Receive Date: 20100820
  Receipt Date: 20100811
  Transmission Date: 20110219
  Serious: Yes (Hospitalization)
  Sender: FDA-Public Use
  Company Number: 2010EU003855

PATIENT
  Sex: Male
  Weight: 100 kg

DRUGS (1)
  1. PROGRAF [Suspect]
     Dosage: 300 MG, UNKNOWN/D, ORAL
     Route: 048

REACTIONS (2)
  - INTENTIONAL OVERDOSE [None]
  - SUICIDAL IDEATION [None]
